FAERS Safety Report 9553040 (Version 1)
Quarter: 2013Q3

REPORT INFORMATION
  Report Type: Spontaneous
  Country: US (occurrence: DE)
  Receive Date: 20130925
  Receipt Date: 20130925
  Transmission Date: 20140515
  Serious: Yes (Hospitalization)
  Sender: FDA-Public Use
  Company Number: DE-FRI-1000049101

PATIENT
  Age: 73 Year
  Sex: Female

DRUGS (1)
  1. LINACLOTIDE [Suspect]
     Route: 048

REACTIONS (1)
  - Acute psychosis [Recovered/Resolved]
